FAERS Safety Report 15253628 (Version 2)
Quarter: 2018Q3

REPORT INFORMATION
  Report Type: Spontaneous
  Country: US (occurrence: US)
  Receive Date: 20180808
  Receipt Date: 20180924
  Transmission Date: 20181010
  Serious: Yes (Other)
  Sender: FDA-Public Use
  Company Number: US-AUROBINDO-AUR-APU-2018-033894

PATIENT
  Age: 67 Year
  Sex: Female

DRUGS (7)
  1. NEXPRO                             /01479302/ [Concomitant]
     Indication: PRODUCT USED FOR UNKNOWN INDICATION
     Dosage: UNK
  2. COBAL                              /00056201/ [Concomitant]
     Indication: PRODUCT USED FOR UNKNOWN INDICATION
     Dosage: UNK
  3. ESCITALOPRAM TABLETS USP 10MG [Suspect]
     Active Substance: ESCITALOPRAM OXALATE
     Indication: ANXIETY
  4. AMANTADINE. [Concomitant]
     Active Substance: AMANTADINE HYDROCHLORIDE
     Indication: PRODUCT USED FOR UNKNOWN INDICATION
     Dosage: UNK
  5. STALEVO                            /01530202/ [Concomitant]
     Active Substance: LEVOCETIRIZINE DIHYDROCHLORIDE
     Indication: PRODUCT USED FOR UNKNOWN INDICATION
     Dosage: UNK
  6. ESCITALOPRAM TABLETS USP 10MG [Suspect]
     Active Substance: ESCITALOPRAM OXALATE
     Indication: PANIC ATTACK
     Dosage: 10 MILLIGRAM, TWO TIMES A DAY
  7. ESCITALOPRAM TABLETS USP 10MG [Suspect]
     Active Substance: ESCITALOPRAM OXALATE
     Indication: DEPRESSION

REACTIONS (7)
  - Gait inability [Not Recovered/Not Resolved]
  - Haemorrhage [Not Recovered/Not Resolved]
  - Eye swelling [Not Recovered/Not Resolved]
  - Rhinorrhoea [Not Recovered/Not Resolved]
  - Nightmare [Not Recovered/Not Resolved]
  - Asphyxia [Not Recovered/Not Resolved]
  - Abdominal pain upper [Not Recovered/Not Resolved]
